FAERS Safety Report 21787945 (Version 8)
Quarter: 2023Q2

REPORT INFORMATION
  Report Type: Spontaneous
  Country: US (occurrence: None)
  Receive Date: 20221228
  Receipt Date: 20230505
  Transmission Date: 20230721
  Serious: Yes (Hospitalization, Other)
  Sender: FDA-Public Use
  Company Number: US-Hikma Pharmaceuticals USA Inc.-US-H14001-22-03258

PATIENT
  Sex: Male

DRUGS (3)
  1. PREDNISONE [Suspect]
     Active Substance: PREDNISONE
     Indication: Addison^s disease
     Route: 065
  2. PREDNISONE [Suspect]
     Active Substance: PREDNISONE
     Dosage: HALF OF TEN MG
     Route: 065
  3. HUMIRA [Concomitant]
     Active Substance: ADALIMUMAB
     Indication: Product used for unknown indication
     Dosage: UNKNOWN
     Route: 065
     Dates: start: 201912

REACTIONS (27)
  - Cerebral disorder [Unknown]
  - Gastrointestinal disorder [Unknown]
  - Inflammation [Unknown]
  - Condition aggravated [Unknown]
  - Surgery [Unknown]
  - Peripheral swelling [Unknown]
  - Weight increased [Unknown]
  - Gait disturbance [Unknown]
  - Musculoskeletal stiffness [Unknown]
  - Varicose vein [Unknown]
  - Tissue injury [Unknown]
  - Dysphemia [Unknown]
  - Swelling [Unknown]
  - Oedema [Unknown]
  - Muscle disorder [Unknown]
  - Poor peripheral circulation [Unknown]
  - Fall [Unknown]
  - Penis disorder [Unknown]
  - Testicular disorder [Unknown]
  - Soft tissue infection [Unknown]
  - Ear infection [Unknown]
  - Metabolic disorder [Unknown]
  - Fluid retention [Unknown]
  - Muscular weakness [Unknown]
  - Product use issue [Unknown]
  - Diabetes mellitus [Unknown]
  - Feeling abnormal [Unknown]
